FAERS Safety Report 7762827-8 (Version None)
Quarter: 2011Q3

REPORT INFORMATION
  Report Type: 
  Country: None (occurrence: None)
  Receive Date: 20110920
  Receipt Date: 20110916
  Transmission Date: 20111222
  Serious: Yes (Other)
  Sender: FDA-Public Use
  Company Number: NO-MERCK-1101NOR00001

PATIENT
  Age: 39 Year
  Sex: Female

DRUGS (4)
  1. METFORMIN [Concomitant]
     Indication: METABOLIC SYNDROME
     Route: 048
  2. IRBESARTAN [Concomitant]
     Indication: METABOLIC SYNDROME
     Route: 048
  3. PANTOPRAZOLE SODIUM [Concomitant]
     Route: 048
  4. ZOCOR [Suspect]
     Indication: METABOLIC SYNDROME
     Route: 048
     Dates: end: 20110601

REACTIONS (2)
  - COGNITIVE DISORDER [None]
  - ENCEPHALOPATHY [None]
